FAERS Safety Report 8450670-6 (Version None)
Quarter: 2012Q2

REPORT INFORMATION
  Report Type: 
  Country: None (occurrence: None)
  Receive Date: 20120620
  Receipt Date: 20120618
  Transmission Date: 20120825
  Serious: No
  Sender: FDA-Public Use
  Company Number: US-PFIZER INC-2012130402

PATIENT
  Sex: Female
  Weight: 108 kg

DRUGS (4)
  1. DIOVAN [Concomitant]
     Indication: HYPERTENSION
     Dosage: UNK
  2. IBUPROFEN [Suspect]
     Indication: PAIN
     Dosage: 400 MG, DAILY
     Dates: start: 20120529
  3. LYRICA [Suspect]
     Indication: BURNING SENSATION
     Dosage: 150 MG, 3X/DAY
     Dates: end: 20120501
  4. TOPROL-XL [Concomitant]
     Indication: HYPERTENSION
     Dosage: UNK

REACTIONS (3)
  - DRUG INEFFECTIVE [None]
  - PAIN IN EXTREMITY [None]
  - INSOMNIA [None]
